FAERS Safety Report 23250448 (Version 1)
Quarter: 2023Q4

REPORT INFORMATION
  Report Type: Spontaneous
  Country: DE (occurrence: DE)
  Receive Date: 20231201
  Receipt Date: 20231201
  Transmission Date: 20240110
  Serious: Yes (Other)
  Sender: FDA-Public Use
  Company Number: DE-ADVANZ PHARMA-202311010854

PATIENT

DRUGS (2)
  1. ZONISAMIDE [Suspect]
     Active Substance: ZONISAMIDE
     Indication: Juvenile absence epilepsy
     Dosage: 100 MG, BID (STARTED ABOUT THREE MONTHS AGO)
  2. LEVETIRACETAM [Concomitant]
     Active Substance: LEVETIRACETAM
     Dosage: UNK, MEDIUM DOSE (STARTED ABOUT 3 MONTHS AGO)

REACTIONS (4)
  - Juvenile absence epilepsy [Not Recovered/Not Resolved]
  - Condition aggravated [Not Recovered/Not Resolved]
  - Blood uric acid increased [Not Recovered/Not Resolved]
  - Drug ineffective [Unknown]
